FAERS Safety Report 14283175 (Version 7)
Quarter: 2020Q2

REPORT INFORMATION
  Report Type: Spontaneous
  Country: US (occurrence: US)
  Receive Date: 20171213
  Receipt Date: 20200506
  Transmission Date: 20200713
  Serious: Yes (Death, Hospitalization, Other)
  Sender: FDA-Public Use
  Company Number: US-ACTELION-A-US2017-164049

PATIENT
  Age: 59 Year
  Sex: Female

DRUGS (21)
  1. LISINOPRIL. [Concomitant]
     Active Substance: LISINOPRIL
  2. VITAMIN B6 [Concomitant]
     Active Substance: PYRIDOXINE HYDROCHLORIDE
  3. BUSPIRONE [Concomitant]
     Active Substance: BUSPIRONE HYDROCHLORIDE
  4. OSELTAMIVIR [Concomitant]
     Active Substance: OSELTAMIVIR
  5. FUROSEMIDE. [Concomitant]
     Active Substance: FUROSEMIDE
  6. IBUPROFEN. [Concomitant]
     Active Substance: IBUPROFEN
  7. VITAMIN D [Concomitant]
     Active Substance: VITAMIN D NOS
  8. TRACLEER [Suspect]
     Active Substance: BOSENTAN
     Indication: PULMONARY ARTERIAL HYPERTENSION
     Dosage: 125 MG, BID
     Route: 048
     Dates: start: 20150616, end: 202004
  9. PROAIR HFA [Concomitant]
     Active Substance: ALBUTEROL SULFATE
  10. AMOXICILLIN. [Concomitant]
     Active Substance: AMOXICILLIN
  11. NAPROXEN. [Concomitant]
     Active Substance: NAPROXEN
  12. METAXALONE. [Concomitant]
     Active Substance: METAXALONE
  13. CLONAZEPAM. [Concomitant]
     Active Substance: CLONAZEPAM
  14. ISONIAZID. [Concomitant]
     Active Substance: ISONIAZID
  15. TYVASO [Concomitant]
     Active Substance: TREPROSTINIL
     Dosage: UNK
  16. CARVEDILOL. [Concomitant]
     Active Substance: CARVEDILOL
  17. AZITHROMYCIN ANHYDROUS. [Concomitant]
     Active Substance: AZITHROMYCIN ANHYDROUS
  18. METOPROLOL SUCCINATE. [Concomitant]
     Active Substance: METOPROLOL SUCCINATE
  19. BREO ELLIPTA [Concomitant]
     Active Substance: FLUTICASONE FUROATE\VILANTEROL TRIFENATATE
  20. SILDENAFIL. [Concomitant]
     Active Substance: SILDENAFIL
  21. ATENOLOL. [Concomitant]
     Active Substance: ATENOLOL

REACTIONS (5)
  - Death [Fatal]
  - Fluid retention [Recovered/Resolved]
  - Lung transplant [Unknown]
  - Pulmonary oedema [Unknown]
  - Dyspnoea [Unknown]

NARRATIVE: CASE EVENT DATE: 201707
